FAERS Safety Report 24969835 (Version 6)
Quarter: 2025Q4

REPORT INFORMATION
  Report Type: Report from Study
  Country: US (occurrence: US)
  Receive Date: 20250214
  Receipt Date: 20251219
  Transmission Date: 20260117
  Serious: Yes (Other)
  Sender: TAKEDA
  Company Number: US-TAKEDA-2024TUS044208

PATIENT
  Age: 57 Year
  Sex: Male

DRUGS (5)
  1. TEDUGLUTIDE [Suspect]
     Active Substance: TEDUGLUTIDE
     Indication: Crohn^s disease
     Dosage: 0.28 MILLILITER, QD
     Dates: start: 202404
  2. TEDUGLUTIDE [Suspect]
     Active Substance: TEDUGLUTIDE
     Indication: Short-bowel syndrome
     Dosage: 0.28 MILLIGRAM, QD
  3. TEDUGLUTIDE [Suspect]
     Active Substance: TEDUGLUTIDE
  4. TEDUGLUTIDE [Suspect]
     Active Substance: TEDUGLUTIDE
  5. IRON [Suspect]
     Active Substance: IRON
     Indication: Product used for unknown indication
     Dosage: UNK

REACTIONS (17)
  - Tuberculosis [Unknown]
  - Rheumatoid arthritis [Unknown]
  - Nipple pain [Unknown]
  - Scratch [Unknown]
  - Arthritis [Unknown]
  - Exostosis [Unknown]
  - Blood iron decreased [Unknown]
  - Night sweats [Unknown]
  - Drug ineffective [Unknown]
  - Fatigue [Unknown]
  - Diarrhoea [Unknown]
  - Arthralgia [Not Recovered/Not Resolved]
  - Vitamin B12 decreased [Unknown]
  - Vitamin D decreased [Unknown]
  - Weight decreased [Unknown]
  - Muscle spasms [Unknown]
  - Pruritus [Recovered/Resolved]

NARRATIVE: CASE EVENT DATE: 20251215
